FAERS Safety Report 8699844 (Version 3)
Quarter: 2015Q1

REPORT INFORMATION
  Report Type: Spontaneous
  Country: US (occurrence: US)
  Receive Date: 20120802
  Receipt Date: 20150115
  Transmission Date: 20150721
  Serious: Yes (Hospitalization, Disabling, Other)
  Sender: FDA-Public Use
  Company Number: US-009507513-1207USA008641

PATIENT
  Sex: Female
  Weight: 63.5 kg

DRUGS (3)
  1. FOSAMAX [Suspect]
     Active Substance: ALENDRONATE SODIUM
     Dosage: 70 MG, QW
     Route: 048
  2. FOSAMAX [Suspect]
     Active Substance: ALENDRONATE SODIUM
     Indication: OSTEOPOROSIS PROPHYLAXIS
     Dosage: UNK
     Route: 048
     Dates: start: 2000, end: 2007
  3. FOSAMAX PLUS D [Suspect]
     Active Substance: ALENDRONATE SODIUM\CHOLECALCIFEROL
     Indication: OSTEOPOROSIS PROPHYLAXIS
     Dosage: UNK
     Route: 048
     Dates: end: 2007

REACTIONS (32)
  - Cartilage injury [Unknown]
  - Mitral valve prolapse [Unknown]
  - Femoral neck fracture [Unknown]
  - Femoral neck fracture [Unknown]
  - Internal fixation of fracture [Unknown]
  - Hypercholesterolaemia [Unknown]
  - Osteoporosis [Unknown]
  - Contusion [Unknown]
  - Medical device complication [Unknown]
  - Gallbladder operation [Unknown]
  - Palpitations [Unknown]
  - Adverse event [Unknown]
  - Road traffic accident [Unknown]
  - Pyrexia [Unknown]
  - Intramedullary rod insertion [Unknown]
  - Periprosthetic fracture [Unknown]
  - Low turnover osteopathy [Unknown]
  - Back pain [Unknown]
  - Removal of internal fixation [Unknown]
  - Cholecystectomy [Unknown]
  - Joint arthroplasty [Unknown]
  - Anaemia postoperative [Unknown]
  - Shoulder operation [Unknown]
  - Sciatica [Unknown]
  - Arthritis [Unknown]
  - Internal fixation of fracture [Unknown]
  - Migraine [Unknown]
  - Cardiac murmur [Unknown]
  - Inappropriate schedule of drug administration [Unknown]
  - Tenosynovitis stenosans [Unknown]
  - Laparoscopic surgery [Unknown]
  - Anaemia postoperative [Unknown]

NARRATIVE: CASE EVENT DATE: 2000
